FAERS Safety Report 11633033 (Version 2)
Quarter: 2015Q4

REPORT INFORMATION
  Report Type: Report from Study
  Country: US (occurrence: US)
  Receive Date: 20151015
  Receipt Date: 20151027
  Transmission Date: 20160304
  Serious: Yes (Death)
  Sender: FDA-Public Use
  Company Number: US-ACTELION-A-NJ2015-125502

PATIENT
  Age: 62 Year
  Sex: Male

DRUGS (1)
  1. TRACLEER [Suspect]
     Active Substance: BOSENTAN
     Indication: PULMONARY ARTERIAL HYPERTENSION
     Dosage: UNK
     Route: 048

REACTIONS (7)
  - Fluid overload [Fatal]
  - Condition aggravated [Fatal]
  - Chronic kidney disease [Fatal]
  - Hypoxia [Fatal]
  - Respiratory distress [Fatal]
  - Dyspnoea [Fatal]
  - Pulmonary arterial hypertension [Fatal]
